FAERS Safety Report 8300790-1 (Version None)
Quarter: 2012Q2

REPORT INFORMATION
  Report Type: 
  Country: None (occurrence: None)
  Receive Date: 20120420
  Receipt Date: 20120418
  Transmission Date: 20120825
  Serious: Yes (Life-Threatening, Hospitalization, Disabling, Other)
  Sender: FDA-Public Use
  Company Number: PHHY2011CA38786

PATIENT
  Sex: Male

DRUGS (12)
  1. VITAMIN D [Concomitant]
  2. EXJADE [Suspect]
     Dosage: 750 MG, UNK
     Route: 048
  3. VITAMIN B-12 [Concomitant]
  4. TRAZODONE HCL [Concomitant]
  5. ACTONEL [Concomitant]
  6. EXJADE [Suspect]
     Indication: MYELODYSPLASTIC SYNDROME
     Dosage: 1500 MG, QD
     Route: 048
  7. EXJADE [Suspect]
     Dosage: 1000-1500 MG QD
     Route: 048
  8. PREDNISONE TAB [Concomitant]
     Dosage: 5 MG, QOD
  9. CALCIUM [Concomitant]
  10. CITALOPRAM HYDROBROMIDE [Concomitant]
  11. EXJADE [Suspect]
     Dosage: 750 MG, UNK
     Route: 048
     Dates: start: 20091117
  12. EXJADE [Suspect]
     Indication: IRON OVERLOAD
     Dosage: 1500 MG, QD
     Route: 048
     Dates: start: 20081201

REACTIONS (9)
  - CEREBROVASCULAR ACCIDENT [None]
  - HAEMORRHAGE INTRACRANIAL [None]
  - ABASIA [None]
  - HEMIPARESIS [None]
  - FALL [None]
  - HEMIPLEGIA [None]
  - FEELING ABNORMAL [None]
  - PLATELET COUNT DECREASED [None]
  - MEMORY IMPAIRMENT [None]
